FAERS Safety Report 15413930 (Version 1)
Quarter: 2018Q3

REPORT INFORMATION
  Report Type: Spontaneous
  Country: US (occurrence: US)
  Receive Date: 20180921
  Receipt Date: 20180921
  Transmission Date: 20181010
  Serious: No
  Sender: FDA-Public Use
  Company Number: US-NOVOPROD-595661

PATIENT
  Age: 57 Year
  Sex: Female

DRUGS (1)
  1. VICTOZA [Suspect]
     Active Substance: LIRAGLUTIDE
     Indication: TYPE 2 DIABETES MELLITUS
     Dosage: 3 MG, QD
     Route: 058
     Dates: start: 201706

REACTIONS (2)
  - Product use issue [Not Recovered/Not Resolved]
  - Weight loss poor [Not Recovered/Not Resolved]
